FAERS Safety Report 7963897-4 (Version None)
Quarter: 2011Q4

REPORT INFORMATION
  Report Type: 
  Country: None (occurrence: None)
  Receive Date: 20111208
  Receipt Date: 20111028
  Transmission Date: 20120403
  Serious: No
  Sender: FDA-Public Use
  Company Number: US-BAYER-2011-105432

PATIENT
  Age: 73 Year
  Sex: Female
  Weight: 84 kg

DRUGS (2)
  1. ALEVE (CAPLET) [Suspect]
     Indication: ARTHRALGIA
     Dosage: 2 DF, QD
     Route: 048
     Dates: start: 20110801, end: 20110901
  2. ASPIRIN [Suspect]
     Indication: ARTHRALGIA
     Dosage: UNK
     Dates: start: 20111027, end: 20111028

REACTIONS (2)
  - FOREIGN BODY [None]
  - ARTHRALGIA [None]
